FAERS Safety Report 8953365 (Version 1)
Quarter: 2012Q4

REPORT INFORMATION
  Report Type: 
  Country: US (occurrence: US)
  Receive Date: 20121206
  Receipt Date: 20121206
  Transmission Date: 20130627
  Serious: Yes (Other)
  Sender: FDA-Public Use
  Company Number: US-BAYER-2012-127936

PATIENT
  Age: 59 Year
  Sex: Female

DRUGS (3)
  1. MAGNEVIST [Suspect]
     Indication: CARDIAC IMAGING PROCEDURE
     Dosage: 27 ml, ONCE
     Route: 042
     Dates: start: 20121205, end: 20121205
  2. MAGNEVIST [Suspect]
     Indication: MITRAL VALVE PROLAPSE
  3. MAGNEVIST [Suspect]
     Indication: VENTRICULAR TACHYCARDIA

REACTIONS (9)
  - Heart rate increased [None]
  - Unresponsive to stimuli [None]
  - Somnolence [None]
  - Choking sensation [None]
  - Hyperhidrosis [None]
  - Productive cough [None]
  - Dyspnoea [None]
  - Nausea [None]
  - Malaise [None]
